FAERS Safety Report 11483165 (Version 7)
Quarter: 2016Q2

REPORT INFORMATION
  Report Type: Spontaneous
  Country: US (occurrence: US)
  Receive Date: 20150909
  Receipt Date: 20160503
  Transmission Date: 20160815
  Serious: Yes (Hospitalization, Other)
  Sender: FDA-Public Use
  Company Number: US-TEVA-591315USA

PATIENT
  Age: 56 Year
  Sex: Female

DRUGS (1)
  1. COPAXONE [Suspect]
     Active Substance: GLATIRAMER ACETATE
     Indication: MULTIPLE SCLEROSIS
     Route: 058
     Dates: start: 20090729

REACTIONS (11)
  - Abdominal discomfort [Not Recovered/Not Resolved]
  - Gallbladder operation [Recovering/Resolving]
  - Post procedural complication [Not Recovered/Not Resolved]
  - Intestinal operation [Recovering/Resolving]
  - Gastric banding reversal [Not Recovered/Not Resolved]
  - Diarrhoea [Unknown]
  - Multiple sclerosis relapse [Unknown]
  - Autoimmune pancreatitis [Unknown]
  - Constipation [Unknown]
  - Abdominal pain [Not Recovered/Not Resolved]
  - Fatigue [Unknown]

NARRATIVE: CASE EVENT DATE: 2015
